FAERS Safety Report 8110713-6 (Version None)
Quarter: 2012Q1

REPORT INFORMATION
  Report Type: 
  Country: None (occurrence: None)
  Receive Date: 20120203
  Receipt Date: 20120123
  Transmission Date: 20120608
  Serious: Yes (Death, Hospitalization)
  Sender: FDA-Public Use
  Company Number: US-BAYER-2011-118621

PATIENT
  Age: 23 Year
  Sex: Female
  Weight: 56.689 kg

DRUGS (2)
  1. YASMIN [Suspect]
     Indication: PREMENSTRUAL SYNDROME
  2. YASMIN [Suspect]
     Indication: MENORRHAGIA
     Dosage: UNK
     Dates: start: 20060516, end: 20061120

REACTIONS (10)
  - DEEP VEIN THROMBOSIS [None]
  - BRAIN HERNIATION [None]
  - HAEMORRHAGIC ANAEMIA [None]
  - CIRCULATORY COLLAPSE [None]
  - CEREBRAL INFARCTION [None]
  - CEREBRAL THROMBOSIS [None]
  - NAUSEA [None]
  - HEADACHE [None]
  - CEREBRAL HAEMORRHAGE [None]
  - VOMITING [None]
